FAERS Safety Report 4975823-0 (Version None)
Quarter: 2006Q2

REPORT INFORMATION
  Report Type: 
  Country: None (occurrence: None)
  Receive Date: 20060411
  Receipt Date: 20060330
  Transmission Date: 20061013
  Serious: Yes (Death, Other)
  Sender: FDA-Public Use
  Company Number: 2006-DE-01679GD

PATIENT
  Age: 55 Year
  Sex: Male

DRUGS (1)
  1. MORPHINE [Suspect]
     Dosage: INITIAL DOSAGE OF 2 MG/D INCREASED TO A PEAK DOSAGE OF 15 MG/D OVER A PERIOD OF 8 MONTHS (NR), IT
     Route: 037

REACTIONS (3)
  - CATHETER RELATED COMPLICATION [None]
  - GRANULOMA [None]
  - SPINAL CORD COMPRESSION [None]
